FAERS Safety Report 8984005 (Version 3)
Quarter: 2013Q1

REPORT INFORMATION
  Report Type: Spontaneous
  Country: GB (occurrence: None)
  Receive Date: 20121212
  Receipt Date: 20130208
  Transmission Date: 20140127
  Serious: Yes (Other)
  Sender: FDA-Public Use
  Company Number: AUR-APL-2012-05249

PATIENT
  Age: 59 Year
  Sex: Male

DRUGS (5)
  1. LISINOPRIL (LISINOPRIL) [Suspect]
     Indication: PRODUCT USED FOR UNKNOWN INDICATION
  2. SUXAMETHONIUM CHLORIDE [Suspect]
     Indication: INDUCTION OF ANAESTHESIA
  3. FENTANYL (FENTANYL) [Concomitant]
  4. PROPOFOL (PROPOFOL) [Concomitant]
  5. EPINEPHRINE [Suspect]
     Route: 042

REACTIONS (5)
  - Cardiac arrest [None]
  - Pulseless electrical activity [None]
  - Anaphylactic reaction [None]
  - No therapeutic response [None]
  - Ventricular fibrillation [None]
